FAERS Safety Report 8769702 (Version 2)
Quarter: 2012Q4

REPORT INFORMATION
  Report Type: 
  Country: US (occurrence: US)
  Receive Date: 20120907
  Receipt Date: 20120913
  Transmission Date: 20130627
  Serious: Yes (Other)
  Sender: FDA-Public Use
  Company Number: US-PFIZER INC-2012214394

PATIENT
  Sex: Female

DRUGS (5)
  1. LYRICA [Suspect]
     Indication: OEDEMA PERIPHERAL
     Dosage: UNK
     Dates: end: 201207
  2. LYRICA [Suspect]
     Indication: FIBROMYALGIA
     Dosage: 450 mg
  3. LYRICA [Suspect]
     Indication: PAIN
     Dosage: 300 mg
  4. LYRICA [Suspect]
     Dosage: 400 to 450 mg in a day
  5. LYRICA [Suspect]
     Dosage: 300mg in a day

REACTIONS (6)
  - Snake bite [Unknown]
  - Fibromyalgia [Unknown]
  - Oedema peripheral [Unknown]
  - Pain [Unknown]
  - Headache [Unknown]
  - Malaise [Unknown]
